FAERS Safety Report 7046131-1 (Version None)
Quarter: 2010Q4

REPORT INFORMATION
  Report Type: 
  Country: None (occurrence: None)
  Receive Date: 20101013
  Receipt Date: 20101013
  Transmission Date: 20110411
  Serious: Yes (Hospitalization)
  Sender: FDA-Public Use
  Company Number: None

PATIENT
  Sex: Female
  Weight: 67.28 kg

DRUGS (2)
  1. CARBOPLATIN [Suspect]
     Dosage: 387 MG
     Dates: end: 20100907
  2. TAXOL [Suspect]
     Dosage: 244 MG
     Dates: end: 20100907

REACTIONS (8)
  - BLOOD MAGNESIUM DECREASED [None]
  - BLOOD SODIUM DECREASED [None]
  - LABORATORY TEST INTERFERENCE [None]
  - NEUTROPHIL COUNT DECREASED [None]
  - PLATELET COUNT DECREASED [None]
  - PROTHROMBIN TIME PROLONGED [None]
  - PYREXIA [None]
  - WHITE BLOOD CELL COUNT DECREASED [None]
